FAERS Safety Report 15617349 (Version 1)
Quarter: 2018Q4

REPORT INFORMATION
  Report Type: Spontaneous
  Country: US (occurrence: US)
  Receive Date: 20181112
  Receipt Date: 20181112
  Transmission Date: 20190205
  Serious: Yes (Disabling)
  Sender: FDA-Public Use
  Company Number: None

PATIENT
  Age: 56 Year
  Sex: Female
  Weight: 60.3 kg

DRUGS (1)
  1. IV MAGNESIUM SULFATE [Suspect]
     Active Substance: MAGNESIUM SULFATE
     Indication: PREMATURE LABOUR
     Route: 042

REACTIONS (2)
  - Maternal exposure during pregnancy [None]
  - Multiple sclerosis [None]

NARRATIVE: CASE EVENT DATE: 19940825
